FAERS Safety Report 7422214-9 (Version None)
Quarter: 2011Q2

REPORT INFORMATION
  Report Type: 
  Country: None (occurrence: None)
  Receive Date: 20110418
  Receipt Date: 20110412
  Transmission Date: 20111010
  Serious: Yes (Other)
  Sender: FDA-Public Use
  Company Number: US-BRISTOL-MYERS SQUIBB COMPANY-15080880

PATIENT
  Age: 82 Year
  Sex: Female

DRUGS (10)
  1. LISINOPRIL [Concomitant]
  2. AMLODIPINE [Concomitant]
  3. METFORMIN [Concomitant]
  4. SYNTHROID [Concomitant]
  5. ONGLYZA [Suspect]
     Dates: start: 20100329, end: 20100413
  6. LASIX [Concomitant]
  7. METOPROLOL [Concomitant]
  8. VITAMIN D [Concomitant]
  9. DIGOXIN [Concomitant]
  10. COUMADIN [Concomitant]

REACTIONS (3)
  - RASH [None]
  - EYELID OEDEMA [None]
  - FACE OEDEMA [None]
